FAERS Safety Report 5044347-7 (Version None)
Quarter: 2006Q2

REPORT INFORMATION
  Report Type: 
  Country: None (occurrence: None)
  Receive Date: 20060601
  Receipt Date: 20060324
  Transmission Date: 20061013
  Serious: No
  Sender: FDA-Public Use
  Company Number: US200603006322

PATIENT
  Age: 36 Year
  Sex: Male

DRUGS (1)
  1. CYMBALTA [Suspect]
     Indication: DEPRESSION
     Dosage: 30 MG, 2/D, ORAL
     Route: 048
     Dates: start: 20060321

REACTIONS (2)
  - MIDDLE INSOMNIA [None]
  - SEXUAL DYSFUNCTION [None]
